FAERS Safety Report 21733931 (Version 1)
Quarter: 2022Q4

REPORT INFORMATION
  Report Type: Spontaneous
  Country: US (occurrence: US)
  Receive Date: 20221215
  Receipt Date: 20221215
  Transmission Date: 20230113
  Serious: No
  Sender: FDA-Public Use
  Company Number: US-AMGEN-USASP2022209587

PATIENT
  Sex: Female

DRUGS (1)
  1. PROLIA [Suspect]
     Active Substance: DENOSUMAB
     Indication: Product used for unknown indication
     Dosage: UNK
     Route: 065

REACTIONS (7)
  - Laryngitis [Recovered/Resolved]
  - Paranasal sinus discomfort [Unknown]
  - Facial pain [Unknown]
  - Ear discomfort [Unknown]
  - Blood cholesterol increased [Unknown]
  - Muscle spasms [Unknown]
  - Nasopharyngitis [Not Recovered/Not Resolved]
